FAERS Safety Report 18973758 (Version 1)
Quarter: 2021Q1

REPORT INFORMATION
  Report Type: Spontaneous
  Country: US (occurrence: US)
  Receive Date: 20210305
  Receipt Date: 20210305
  Transmission Date: 20210420
  Serious: No
  Sender: FDA-Public Use
  Company Number: US-ASTRAZENECA-2021A045211

PATIENT
  Age: 760 Month
  Sex: Female

DRUGS (1)
  1. FARXIGA [Suspect]
     Active Substance: DAPAGLIFLOZIN PROPANEDIOL
     Indication: TYPE 2 DIABETES MELLITUS
     Route: 048
     Dates: start: 202011

REACTIONS (5)
  - Vulvovaginal rash [Not Recovered/Not Resolved]
  - Genital pain [Not Recovered/Not Resolved]
  - Fungal infection [Not Recovered/Not Resolved]
  - Genital discomfort [Not Recovered/Not Resolved]
  - Genital erythema [Not Recovered/Not Resolved]

NARRATIVE: CASE EVENT DATE: 202012
